FAERS Safety Report 7963092-9 (Version None)
Quarter: 2011Q4

REPORT INFORMATION
  Report Type: 
  Country: None (occurrence: None)
  Receive Date: 20111207
  Receipt Date: 20111123
  Transmission Date: 20120403
  Serious: Yes (Other)
  Sender: FDA-Public Use
  Company Number: DE-ROCHE-1016660

PATIENT
  Age: 1 Day
  Sex: Female

DRUGS (5)
  1. TRANYLCYPROMINE SULFATE [Suspect]
     Indication: BIPOLAR DISORDER
     Route: 064
     Dates: start: 20100826, end: 20110510
  2. LITHIUM [Suspect]
     Indication: BIPOLAR DISORDER
     Route: 064
     Dates: start: 20100826, end: 20110510
  3. DIAZEPAM [Suspect]
     Indication: BIPOLAR DISORDER
     Route: 064
     Dates: start: 20100826, end: 20110510
  4. FOLIC ACID [Suspect]
     Indication: PROPHYLAXIS OF NEURAL TUBE DEFECT
     Route: 064
  5. ONDANSETRON [Suspect]
     Indication: HYPEREMESIS GRAVIDARUM
     Route: 064
     Dates: start: 20101017, end: 20110510

REACTIONS (5)
  - FEEDING DISORDER NEONATAL [None]
  - COORDINATION ABNORMAL [None]
  - LARGE FOR DATES BABY [None]
  - HYPERTONIA [None]
  - HYPOTONIA NEONATAL [None]
